FAERS Safety Report 13598765 (Version 1)
Quarter: 2017Q2

REPORT INFORMATION
  Report Type: Spontaneous
  Country: FR (occurrence: FR)
  Receive Date: 20170531
  Receipt Date: 20170531
  Transmission Date: 20170830
  Serious: Yes (Hospitalization)
  Sender: FDA-Public Use
  Company Number: FR-PFIZER INC-2017232844

PATIENT
  Sex: Male

DRUGS (18)
  1. OPDIVO [Suspect]
     Active Substance: NIVOLUMAB
     Indication: LUNG ADENOCARCINOMA
     Dosage: 216 MG, UNK
     Dates: start: 20170421, end: 20170421
  2. OPDIVO [Suspect]
     Active Substance: NIVOLUMAB
     Dosage: 216 MG, UNK
     Route: 042
     Dates: start: 20170421
  3. ACTISKENAN [Concomitant]
     Active Substance: MORPHINE SULFATE
     Indication: METASTASES TO LIVER
  4. EUPANTOL [Concomitant]
     Active Substance: PANTOPRAZOLE SODIUM
     Indication: METASTASES TO LIVER
  5. LAROXYL [Concomitant]
     Active Substance: AMITRIPTYLINE
     Indication: METASTASES TO BONE
     Dosage: UNK
     Dates: start: 201702
  6. LYRICA [Suspect]
     Active Substance: PREGABALIN
     Indication: PAIN
     Dosage: 25 MG, 2X/DAY
     Route: 048
     Dates: start: 20170421, end: 20170422
  7. ACTISKENAN [Concomitant]
     Active Substance: MORPHINE SULFATE
     Indication: METASTASES TO BONE
     Dosage: UNK
     Dates: start: 201702
  8. MESTINON [Concomitant]
     Active Substance: PYRIDOSTIGMINE BROMIDE
     Indication: METASTASES TO LIVER
  9. LAROXYL [Concomitant]
     Active Substance: AMITRIPTYLINE
     Indication: METASTASES TO LIVER
  10. SPECIAFOLDINE [Concomitant]
     Active Substance: FOLIC ACID
     Indication: METASTASES TO BONE
     Dosage: UNK
     Dates: start: 201702
  11. DUROGESIC [Concomitant]
     Active Substance: FENTANYL
     Indication: METASTASES TO BONE
     Dosage: UNK
     Dates: start: 201702
  12. MESTINON [Concomitant]
     Active Substance: PYRIDOSTIGMINE BROMIDE
     Indication: METASTASES TO BONE
     Dosage: UNK
     Dates: start: 201702
  13. SPECIAFOLDINE [Concomitant]
     Active Substance: FOLIC ACID
     Indication: METASTASES TO LIVER
  14. XGEVA [Suspect]
     Active Substance: DENOSUMAB
     Indication: PROPHYLAXIS
     Dosage: 120 MG, 1X/DAY
     Route: 058
     Dates: start: 20170421, end: 20170421
  15. DUROGESIC [Concomitant]
     Active Substance: FENTANYL
     Indication: METASTASES TO LIVER
  16. EUPANTOL [Concomitant]
     Active Substance: PANTOPRAZOLE SODIUM
     Indication: METASTASES TO BONE
     Dosage: UNK
     Dates: start: 201702
  17. DUPHALAC [Concomitant]
     Active Substance: LACTULOSE
     Indication: METASTASES TO BONE
     Dosage: UNK
     Dates: start: 201702
  18. DUPHALAC [Concomitant]
     Active Substance: LACTULOSE
     Indication: METASTASES TO LIVER

REACTIONS (4)
  - Rash scarlatiniform [Unknown]
  - Abdominal pain upper [Unknown]
  - Rash morbilliform [Recovered/Resolved]
  - Pyrexia [Recovered/Resolved]

NARRATIVE: CASE EVENT DATE: 20170422
